FAERS Safety Report 15606170 (Version 2)
Quarter: 2019Q2

REPORT INFORMATION
  Report Type: Spontaneous
  Country: FR (occurrence: FR)
  Receive Date: 20181112
  Receipt Date: 20190405
  Transmission Date: 20190711
  Serious: Yes (Hospitalization)
  Sender: FDA-Public Use
  Company Number: FR-ACCORD-091832

PATIENT
  Age: 8 Year
  Sex: Female
  Weight: 18.8 kg

DRUGS (4)
  1. CYTARABINE/CYTARABINE HYDROCHLORIDE/CYTARABINE OCFOSFATE [Suspect]
     Active Substance: CYTARABINE
     Indication: ACUTE LYMPHOCYTIC LEUKAEMIA
     Dosage: ALSO RECEIVED FROM 15-MAR-2018 TO 20-MAR-2018
     Route: 042
     Dates: start: 20180315, end: 20180318
  2. LEVETIRACETAM. [Suspect]
     Active Substance: LEVETIRACETAM
     Indication: EPILEPSY
     Route: 048
     Dates: start: 20180226, end: 20180320
  3. PURINETHOL [Suspect]
     Active Substance: MERCAPTOPURINE
     Indication: ACUTE LYMPHOCYTIC LEUKAEMIA
     Dosage: ALSO RECEIVED ORAL FROM 13-MAR-2018 TO 20-MAR-2018
     Route: 048
     Dates: start: 20180315
  4. METHOTREXATE. [Suspect]
     Active Substance: METHOTREXATE
     Indication: ACUTE LYMPHOCYTIC LEUKAEMIA
     Route: 024
     Dates: start: 20180315

REACTIONS (5)
  - Thrombocytopenia [Not Recovered/Not Resolved]
  - Mucosal inflammation [Recovered/Resolved]
  - Toxic skin eruption [Recovered/Resolved]
  - Erythema [Recovering/Resolving]
  - Toxic epidermal necrolysis [Recovered/Resolved]

NARRATIVE: CASE EVENT DATE: 20180315
